FAERS Safety Report 5800480-0 (Version None)
Quarter: 2008Q3

REPORT INFORMATION
  Report Type: 
  Country: None (occurrence: None)
  Receive Date: 20080703
  Receipt Date: 20080630
  Transmission Date: 20090109
  Serious: Yes (Other)
  Sender: FDA-Public Use
  Company Number: A0735370A

PATIENT
  Age: 70 Year
  Sex: Male

DRUGS (2)
  1. RYTHMOL SR [Suspect]
     Indication: ATRIAL FIBRILLATION
     Dosage: 225MG TWICE PER DAY
     Route: 048
     Dates: start: 20060101
  2. LISINOPRIL [Concomitant]

REACTIONS (1)
  - ATRIAL FIBRILLATION [None]
